FAERS Safety Report 10758811 (Version 3)
Quarter: 2015Q2

REPORT INFORMATION
  Report Type: Spontaneous
  Country: US (occurrence: US)
  Receive Date: 20150203
  Receipt Date: 20150424
  Transmission Date: 20150821
  Serious: No
  Sender: FDA-Public Use
  Company Number: US-PFIZER INC-2015038668

PATIENT
  Age: 68 Year
  Sex: Female

DRUGS (2)
  1. CELEBREX [Suspect]
     Active Substance: CELECOXIB
     Indication: OSTEOARTHRITIS
     Dosage: 200 MG ONE CAPSULE TWICE DAILY AS NEEDED AND SOMETIMES SHE WAS TAKING 400 MG
     Route: 048
  2. ATORVASTATIN CALCIUM. [Suspect]
     Active Substance: ATORVASTATIN CALCIUM
     Dosage: 20 MG, UNK

REACTIONS (2)
  - Gallbladder disorder [Not Recovered/Not Resolved]
  - Liver disorder [Not Recovered/Not Resolved]
